FAERS Safety Report 13840345 (Version 1)
Quarter: 2017Q3

REPORT INFORMATION
  Report Type: Spontaneous
  Country: US (occurrence: US)
  Receive Date: 20170807
  Receipt Date: 20170807
  Transmission Date: 20171127
  Serious: No
  Sender: FDA-Public Use
  Company Number: US-AEGERION PHARMACEUTICAL, INC-AEGR003179

PATIENT
  Age: 38 Year
  Sex: Female
  Weight: 39.46 kg

DRUGS (21)
  1. ESTRADIOL. [Concomitant]
     Active Substance: ESTRADIOL
     Dosage: 1 MG, QD
     Route: 048
  2. FISH OIL [Concomitant]
     Active Substance: FISH OIL
     Indication: PRODUCT USED FOR UNKNOWN INDICATION
  3. MYALEPT [Suspect]
     Active Substance: METRELEPTIN
     Indication: CONGENITAL GENERALISED LIPODYSTROPHY
     Dosage: 2 MG, QD
     Route: 058
     Dates: start: 20170508
  4. TRAZODONE [Concomitant]
     Active Substance: TRAZODONE HYDROCHLORIDE
     Indication: PRODUCT USED FOR UNKNOWN INDICATION
     Dosage: 100 MG, 2 QHS
     Route: 048
  5. NORCO [Concomitant]
     Active Substance: ACETAMINOPHEN\HYDROCODONE BITARTRATE
     Indication: PRODUCT USED FOR UNKNOWN INDICATION
     Dosage: 10-325 MG, UP TO 6X/DAY PRN
     Route: 048
  6. VITAMIN D3 [Concomitant]
     Active Substance: CHOLECALCIFEROL
     Indication: PRODUCT USED FOR UNKNOWN INDICATION
     Dosage: 2000 UNITS, UNK
     Route: 048
  7. CALCIUM MAGNESIUM ZINC [Concomitant]
     Active Substance: CALCIUM\MAGNESIUM\ZINC
     Indication: PRODUCT USED FOR UNKNOWN INDICATION
     Route: 048
  8. MYALEPT [Suspect]
     Active Substance: METRELEPTIN
     Dosage: 0.15 MG, QD
     Route: 058
     Dates: start: 2017
  9. ESTRADIOL. [Concomitant]
     Active Substance: ESTRADIOL
     Indication: PRODUCT USED FOR UNKNOWN INDICATION
     Dosage: 0.1 MG/24HR, 2 PATCHES WEEKLY
     Route: 062
  10. COENZYME Q10 [Concomitant]
     Active Substance: UBIDECARENONE
     Indication: PRODUCT USED FOR UNKNOWN INDICATION
     Route: 048
  11. FLUTICASONE PROPIONATE. [Concomitant]
     Active Substance: FLUTICASONE PROPIONATE
     Indication: PRODUCT USED FOR UNKNOWN INDICATION
     Dosage: 50 MCG/ACT
     Route: 045
  12. LEVOTHYROXINE SODIUM. [Concomitant]
     Active Substance: LEVOTHYROXINE SODIUM
     Indication: PRODUCT USED FOR UNKNOWN INDICATION
     Dosage: 25 MCG, QD ON EMPTY STOMACH
     Route: 048
  13. MONOCLONAL ANTIBODIES [Concomitant]
     Active Substance: UNSPECIFIED INGREDIENT
     Indication: AUTOIMMUNE ARTHRITIS
  14. MYALEPT [Suspect]
     Active Substance: METRELEPTIN
     Dosage: 0.1 MG, QD
     Route: 058
     Dates: start: 2017, end: 2017
  15. MULTIVITAMIN [Concomitant]
     Active Substance: VITAMINS
     Indication: PRODUCT USED FOR UNKNOWN INDICATION
  16. RESTASIS [Concomitant]
     Active Substance: CYCLOSPORINE
     Indication: PRODUCT USED FOR UNKNOWN INDICATION
     Route: 047
  17. MIRALAX [Concomitant]
     Active Substance: POLYETHYLENE GLYCOL 3350
     Indication: PRODUCT USED FOR UNKNOWN INDICATION
     Route: 048
  18. MYALEPT [Suspect]
     Active Substance: METRELEPTIN
     Dosage: 0.3 MG, QD
     Route: 058
     Dates: start: 2017, end: 2017
  19. SPIRONOLACTONE. [Concomitant]
     Active Substance: SPIRONOLACTONE
     Indication: PRODUCT USED FOR UNKNOWN INDICATION
     Dosage: 50 MG, BID
     Route: 048
  20. OMEGA-3 FATTY ACIDS [Concomitant]
     Active Substance: OMEGA-3 FATTY ACIDS
     Indication: PRODUCT USED FOR UNKNOWN INDICATION
     Dosage: 1 UNK, QD
  21. LORAZEPAM. [Concomitant]
     Active Substance: LORAZEPAM
     Indication: PRODUCT USED FOR UNKNOWN INDICATION
     Dosage: 1 MG, UNK
     Route: 048

REACTIONS (17)
  - Injection site pruritus [Not Recovered/Not Resolved]
  - Nausea [Recovered/Resolved]
  - Hunger [Not Recovered/Not Resolved]
  - Diarrhoea [Unknown]
  - Incorrect dose administered [Recovered/Resolved]
  - Rash papular [Not Recovered/Not Resolved]
  - Injection site rash [Not Recovered/Not Resolved]
  - Abdominal pain upper [Unknown]
  - Weight increased [Unknown]
  - Depressed mood [Unknown]
  - Injection site pain [Not Recovered/Not Resolved]
  - Vomiting [Recovered/Resolved]
  - Injection site erythema [Not Recovered/Not Resolved]
  - Fatigue [Unknown]
  - Injection site extravasation [Recovered/Resolved]
  - Gastrooesophageal reflux disease [Unknown]
  - Pain [Not Recovered/Not Resolved]

NARRATIVE: CASE EVENT DATE: 201705
